FAERS Safety Report 13371367 (Version 1)
Quarter: 2017Q1

REPORT INFORMATION
  Report Type: Spontaneous
  Country: CH (occurrence: CH)
  Receive Date: 20170324
  Receipt Date: 20170324
  Transmission Date: 20170429
  Serious: Yes (Life-Threatening)
  Sender: FDA-Public Use
  Company Number: CH-GLAXOSMITHKLINE-CH2017039804

PATIENT
  Age: 46 Year
  Sex: Male
  Weight: 86 kg

DRUGS (12)
  1. LIDOCAINE. [Suspect]
     Active Substance: LIDOCAINE
     Indication: PRODUCT USED FOR UNKNOWN INDICATION
     Dosage: UNK
     Route: 041
     Dates: start: 20170308, end: 20170308
  2. BRIDION [Suspect]
     Active Substance: SUGAMMADEX
     Indication: PRODUCT USED FOR UNKNOWN INDICATION
     Dosage: 250 MG, UNK
     Route: 040
     Dates: start: 20170308, end: 20170308
  3. KETAMINE [Suspect]
     Active Substance: KETAMINE
     Indication: GENERAL ANAESTHESIA
     Dosage: UNK
     Route: 041
     Dates: start: 20170308, end: 20170308
  4. NOREPINEPHRINE [Suspect]
     Active Substance: NOREPINEPHRINE\NOREPINEPHRINE BITARTRATE
     Dosage: UNK
     Route: 041
     Dates: start: 20170308, end: 20170308
  5. ZINACEF [Suspect]
     Active Substance: CEFUROXIME SODIUM
     Indication: ANTIBIOTIC PROPHYLAXIS
     Dosage: 1.5 G, UNK
     Route: 041
     Dates: start: 20170308, end: 20170308
  6. MORPHINE [Suspect]
     Active Substance: MORPHINE
     Indication: PRODUCT USED FOR UNKNOWN INDICATION
     Dosage: 5 MG, UNK
     Route: 041
     Dates: start: 20170308, end: 20170308
  7. PERFALGAN [Suspect]
     Active Substance: ACETAMINOPHEN
     Indication: PRODUCT USED FOR UNKNOWN INDICATION
     Dosage: 1 G, UNK
     Route: 041
     Dates: start: 20170308, end: 20170308
  8. ZOFRAN [Suspect]
     Active Substance: ONDANSETRON HYDROCHLORIDE
     Dosage: 4 MG, UNK
     Dates: start: 20170308, end: 20170308
  9. PROPOFOL. [Suspect]
     Active Substance: PROPOFOL
     Indication: GENERAL ANAESTHESIA
     Dosage: 150 MG, UNK
     Route: 041
     Dates: start: 20170308, end: 20170308
  10. FENTANYL. [Suspect]
     Active Substance: FENTANYL
     Indication: GENERAL ANAESTHESIA
     Dosage: 500 ?G, UNK
     Route: 041
     Dates: start: 20170308, end: 20170308
  11. FLAGYL [Suspect]
     Active Substance: METRONIDAZOLE\METRONIDAZOLE HYDROCHLORIDE
     Indication: ANTIBIOTIC PROPHYLAXIS
     Dosage: 500 MG, UNK
     Route: 041
     Dates: start: 20170308, end: 20170308
  12. ROCURONIUM [Suspect]
     Active Substance: ROCURONIUM BROMIDE
     Indication: GENERAL ANAESTHESIA
     Dosage: 165 MG, UNK
     Route: 041
     Dates: start: 20170308, end: 20170308

REACTIONS (4)
  - Tachycardia [Recovered/Resolved]
  - Hypersensitivity [Recovered/Resolved]
  - Hypotension [Recovered/Resolved]
  - Rash generalised [Recovered/Resolved]

NARRATIVE: CASE EVENT DATE: 20170308
